FAERS Safety Report 4691472-6 (Version None)
Quarter: 2005Q2

REPORT INFORMATION
  Report Type: 
  Country: None (occurrence: None)
  Receive Date: 20050613
  Receipt Date: 20050218
  Transmission Date: 20051028
  Serious: Yes (Other)
  Sender: FDA-Public Use
  Company Number: S05-USA-01021-01

PATIENT
  Age: 17 Year
  Sex: Male
  Weight: 76 kg

DRUGS (5)
  1. LEXAPRO [Suspect]
     Indication: DEPRESSION
     Dates: end: 20050201
  2. PROVIGIL [Concomitant]
  3. ADVICOR [Concomitant]
  4. MINOCYCLINE HCL [Concomitant]
  5. FLOVENT [Concomitant]

REACTIONS (1)
  - HEPATIC ENZYME INCREASED [None]
